FAERS Safety Report 22656375 (Version 1)
Quarter: 2023Q2

REPORT INFORMATION
  Report Type: Spontaneous
  Country: PL (occurrence: PL)
  Receive Date: 20230629
  Receipt Date: 20230629
  Transmission Date: 20230721
  Serious: Yes (Other)
  Sender: FDA-Public Use
  Company Number: PL-BRISTOL-MYERS SQUIBB COMPANY-2023-090660

PATIENT
  Age: 61 Year
  Sex: Female

DRUGS (2)
  1. DASATINIB [Suspect]
     Active Substance: DASATINIB
     Indication: Systemic mastocytosis
     Dates: start: 201702, end: 201705
  2. DASATINIB [Suspect]
     Active Substance: DASATINIB
     Dates: start: 201705, end: 201708

REACTIONS (7)
  - Urinary tract infection [Unknown]
  - Thrombocytopenia [Recovering/Resolving]
  - Upper respiratory tract infection [Unknown]
  - Anaemia [Recovering/Resolving]
  - Anaphylactic reaction [Unknown]
  - Mast cell activation syndrome [Unknown]
  - Off label use [Unknown]

NARRATIVE: CASE EVENT DATE: 20170101
